FAERS Safety Report 5901651-5 (Version None)
Quarter: 2008Q3

REPORT INFORMATION
  Report Type: 
  Country: None (occurrence: None)
  Receive Date: 20080929
  Receipt Date: 20080923
  Transmission Date: 20090109
  Serious: Yes (Other)
  Sender: FDA-Public Use
  Company Number: MX-MERCK-0809MEX00024M

PATIENT
  Age: 38 Year
  Sex: Female
  Weight: 53 kg

DRUGS (3)
  1. ALDOMET [Suspect]
     Indication: HYPERTENSION
     Route: 048
     Dates: start: 20080801
  2. HYDRALAZINE [Concomitant]
     Indication: HYPERTENSION
     Route: 048
     Dates: start: 20080801
  3. IRON POLYMALTOSE [Concomitant]
     Indication: MEDICAL DIET
     Route: 048
     Dates: start: 20080101, end: 20080903

REACTIONS (3)
  - DRUG EXPOSURE DURING PREGNANCY [None]
  - DRUG EXPOSURE VIA BREAST MILK [None]
  - PRE-ECLAMPSIA [None]
